FAERS Safety Report 4585879-5 (Version None)
Quarter: 2005Q1

REPORT INFORMATION
  Report Type: 
  Country: None (occurrence: None)
  Receive Date: 20050125
  Receipt Date: 20041004
  Transmission Date: 20050727
  Serious: No
  Sender: FDA-Public Use
  Company Number: USA040978807

PATIENT
  Age: 73 Year
  Sex: Female

DRUGS (1)
  1. FORTEO [Suspect]
     Indication: OSTEOPOROSIS
     Dosage: 20 UG/1 DAY
     Dates: start: 20040803, end: 20041002

REACTIONS (4)
  - BACK PAIN [None]
  - DIFFICULTY IN WALKING [None]
  - INSOMNIA [None]
  - PAIN IN EXTREMITY [None]
